FAERS Safety Report 7504490-7 (Version None)
Quarter: 2011Q2

REPORT INFORMATION
  Report Type: 
  Country: None (occurrence: None)
  Receive Date: 20110525
  Receipt Date: 20110519
  Transmission Date: 20111010
  Serious: Yes (Hospitalization)
  Sender: FDA-Public Use
  Company Number: AT-GILEAD-2011-0039683

PATIENT
  Age: 86 Year
  Sex: Male

DRUGS (15)
  1. ATORVASTATIN CALCIUM [Suspect]
     Route: 048
     Dates: end: 20110507
  2. ENALAPRIL MALEATE [Concomitant]
  3. NOVOMIX [Concomitant]
     Route: 058
  4. ASPIRIN [Concomitant]
     Route: 048
  5. NEXIUM [Concomitant]
     Route: 048
  6. XANOR [Concomitant]
     Route: 003
  7. MOLSIDOLAT [Concomitant]
     Route: 048
  8. METOPROLOL TARTRATE [Concomitant]
     Route: 048
  9. ENALAPRIL/HCT [Concomitant]
     Route: 048
  10. CITALOPRAM HYDROBROMIDE [Concomitant]
  11. PLAVIX [Concomitant]
     Route: 048
  12. ENALAPRIL/HCT [Concomitant]
     Route: 048
  13. DIGIMERCK [Concomitant]
     Route: 048
  14. DANCOR [Concomitant]
     Route: 048
  15. RANEXA [Suspect]
     Indication: ANGINA PECTORIS
     Route: 048
     Dates: start: 20110415, end: 20110507

REACTIONS (2)
  - DRUG INTERACTION [None]
  - RHABDOMYOLYSIS [None]
